FAERS Safety Report 25181651 (Version 2)
Quarter: 2025Q2

REPORT INFORMATION
  Report Type: Spontaneous
  Country: PT (occurrence: PT)
  Receive Date: 20250410
  Receipt Date: 20250430
  Transmission Date: 20250716
  Serious: Yes (Other)
  Sender: AUROBINDO
  Company Number: PT-INFARMED-J202503-735

PATIENT
  Age: 67 Year
  Sex: Female
  Weight: 72 kg

DRUGS (3)
  1. LETROZOLE [Suspect]
     Active Substance: LETROZOLE
     Indication: Breast cancer
     Dosage: 2.5 MILLIGRAM, ONCE A DAY (1ID (1X AO DIA))
     Route: 048
     Dates: start: 20250215, end: 20250217
  2. SIMVASTATIN [Concomitant]
     Active Substance: SIMVASTATIN
     Indication: Product used for unknown indication
     Route: 048
  3. OLMESARTAN [Concomitant]
     Active Substance: OLMESARTAN
     Indication: Product used for unknown indication
     Route: 048

REACTIONS (3)
  - Chest pain [Recovered/Resolved with Sequelae]
  - Abdominal distension [Recovered/Resolved with Sequelae]
  - Product substitution issue [Recovered/Resolved with Sequelae]

NARRATIVE: CASE EVENT DATE: 20250215
